FAERS Safety Report 7331542-7 (Version None)
Quarter: 2011Q1

REPORT INFORMATION
  Report Type: 
  Country: None (occurrence: None)
  Receive Date: 20110304
  Receipt Date: 20110301
  Transmission Date: 20110831
  Serious: Yes (Death, Life-Threatening)
  Sender: FDA-Public Use
  Company Number: US-PFIZER INC-2011036290

PATIENT
  Sex: Male
  Weight: 97.1 kg

DRUGS (6)
  1. LISINOPRIL [Concomitant]
     Indication: BLOOD PRESSURE
     Route: 048
  2. BIDIL [Concomitant]
     Route: 048
  3. TOPROL-XL [Concomitant]
     Indication: BLOOD PRESSURE
     Route: 048
  4. TEMSIROLIMUS [Suspect]
     Dosage: 15 MG, WEEKLY
     Route: 042
     Dates: start: 20110104, end: 20110208
  5. CAPECITABINE [Suspect]
     Dosage: 2500 MG AM, 2000 MG PM, 7 DAYS ON 7 DAYS OFF
     Route: 048
     Dates: start: 20110104, end: 20110207
  6. LIPITOR [Concomitant]
     Indication: BLOOD CHOLESTEROL
     Route: 048

REACTIONS (1)
  - LABORATORY TEST ABNORMAL [None]
